FAERS Safety Report 5477947-0 (Version None)
Quarter: 2007Q4

REPORT INFORMATION
  Report Type: 
  Country: None (occurrence: None)
  Receive Date: 20071005
  Receipt Date: 20070925
  Transmission Date: 20080405
  Serious: Yes (Other)
  Sender: FDA-Public Use
  Company Number: US-JNJFOC-20070905370

PATIENT
  Age: 4 Decade
  Sex: Male

DRUGS (2)
  1. REMICADE [Suspect]
     Indication: CROHN'S DISEASE
     Route: 042
  2. EPINEPHRINE [Suspect]
     Indication: PREMEDICATION

REACTIONS (2)
  - CARDIAC ARREST [None]
  - DRUG ADMINISTRATION ERROR [None]
